FAERS Safety Report 8062658-8 (Version None)
Quarter: 2012Q1

REPORT INFORMATION
  Report Type: 
  Country: None (occurrence: None)
  Receive Date: 20120123
  Receipt Date: 20120118
  Transmission Date: 20120608
  Serious: Yes (Disabling)
  Sender: FDA-Public Use
  Company Number: US-PFIZER INC-2012015800

PATIENT
  Sex: Female

DRUGS (1)
  1. FLECTOR [Suspect]
     Dosage: UNK
     Route: 062

REACTIONS (1)
  - INJURY [None]
